FAERS Safety Report 4299430-0 (Version None)
Quarter: 2004Q1

REPORT INFORMATION
  Report Type: 
  Country: None (occurrence: None)
  Receive Date: 20040217
  Receipt Date: 20040204
  Transmission Date: 20041129
  Serious: Yes (Death, Hospitalization)
  Sender: FDA-Public Use
  Company Number: 2004SE00340

PATIENT
  Age: 76 Year
  Sex: Male
  Weight: 82 kg

DRUGS (5)
  1. BLOPRESS [Suspect]
     Indication: CARDIAC FAILURE
     Dosage: 16 MG QD PO
     Route: 048
     Dates: start: 20030318, end: 20031129
  2. SPIRO-RATIO [Suspect]
     Indication: RIGHT VENTRICULAR FAILURE
     Dosage: 50 MG QD PO
     Route: 048
     Dates: start: 20031125, end: 20031129
  3. CORANGIN [Concomitant]
  4. MARCUMAR [Concomitant]
  5. SOTALEX MITE [Concomitant]

REACTIONS (7)
  - ASTHENIA [None]
  - BRADYARRHYTHMIA [None]
  - CARDIAC ARREST [None]
  - ELECTROCARDIOGRAM T WAVE AMPLITUDE INCREASED [None]
  - HYPERKALAEMIA [None]
  - MONOPLEGIA [None]
  - VENTRICULAR FIBRILLATION [None]
